FAERS Safety Report 23325900 (Version 1)
Quarter: 2023Q4

REPORT INFORMATION
  Report Type: Other
  Country: US (occurrence: None)
  Receive Date: 20231221
  Receipt Date: 20231221
  Transmission Date: 20240109
  Serious: Yes (Other)
  Sender: FDA-Public Use
  Company Number: US-ROCHE-3476733

PATIENT

DRUGS (21)
  1. ATEZOLIZUMAB [Suspect]
     Active Substance: ATEZOLIZUMAB
     Indication: Malignant genitourinary tract neoplasm
     Route: 065
  2. ATEZOLIZUMAB [Suspect]
     Active Substance: ATEZOLIZUMAB
     Indication: Malignant melanoma
  3. ATEZOLIZUMAB [Suspect]
     Active Substance: ATEZOLIZUMAB
     Indication: Pancreatic carcinoma
  4. ATEZOLIZUMAB [Suspect]
     Active Substance: ATEZOLIZUMAB
     Indication: Breast cancer
  5. ATEZOLIZUMAB [Suspect]
     Active Substance: ATEZOLIZUMAB
     Indication: Lymphoma
  6. PEMBROLIZUMAB [Suspect]
     Active Substance: PEMBROLIZUMAB
     Indication: Neoplasm malignant
     Route: 065
  7. PEMBROLIZUMAB [Suspect]
     Active Substance: PEMBROLIZUMAB
     Indication: Malignant melanoma
  8. PEMBROLIZUMAB [Suspect]
     Active Substance: PEMBROLIZUMAB
     Indication: Pancreatic carcinoma
  9. PEMBROLIZUMAB [Suspect]
     Active Substance: PEMBROLIZUMAB
     Indication: Breast cancer
  10. PEMBROLIZUMAB [Suspect]
     Active Substance: PEMBROLIZUMAB
     Indication: Lymphoma
  11. NIVOLUMAB [Suspect]
     Active Substance: NIVOLUMAB
     Indication: Malignant genitourinary tract neoplasm
     Route: 065
  12. NIVOLUMAB [Suspect]
     Active Substance: NIVOLUMAB
     Indication: Malignant melanoma
  13. NIVOLUMAB [Suspect]
     Active Substance: NIVOLUMAB
     Indication: Pancreatic carcinoma
  14. NIVOLUMAB [Suspect]
     Active Substance: NIVOLUMAB
     Indication: Breast cancer
  15. NIVOLUMAB [Suspect]
     Active Substance: NIVOLUMAB
     Indication: Lymphoma
  16. AVELUMAB [Suspect]
     Active Substance: AVELUMAB
     Indication: Malignant genitourinary tract neoplasm
     Route: 065
  17. AVELUMAB [Suspect]
     Active Substance: AVELUMAB
     Indication: Malignant melanoma
  18. AVELUMAB [Suspect]
     Active Substance: AVELUMAB
     Indication: Pancreatic carcinoma
  19. AVELUMAB [Suspect]
     Active Substance: AVELUMAB
     Indication: Breast cancer
  20. AVELUMAB [Suspect]
     Active Substance: AVELUMAB
     Indication: Lymphoma
  21. USTEKINUMAB [Concomitant]
     Active Substance: USTEKINUMAB

REACTIONS (3)
  - Pyoderma gangrenosum [Unknown]
  - Dermatitis psoriasiform [Unknown]
  - Rash morbilliform [Unknown]
